FAERS Safety Report 5037434-0 (Version None)
Quarter: 2006Q2

REPORT INFORMATION
  Report Type: 
  Country: None (occurrence: None)
  Receive Date: 20060601
  Receipt Date: 20060201
  Transmission Date: 20061013
  Serious: No
  Sender: FDA-Public Use
  Company Number: 2006PV007960

PATIENT
  Age: 53 Year
  Sex: Male
  Weight: 133.8111 kg

DRUGS (3)
  1. BYETTA [Suspect]
     Indication: DIABETES MELLITUS NON-INSULIN-DEPENDENT
     Dosage: 5 MCG;BID;SC
     Route: 058
     Dates: start: 20060120
  2. ADVANDAMET [Concomitant]
  3. ALEVE (CAPLET) [Concomitant]

REACTIONS (1)
  - INJECTION SITE BRUISING [None]
